FAERS Safety Report 19019400 (Version 1)
Quarter: 2021Q1

REPORT INFORMATION
  Report Type: Report from Study
  Country: IN (occurrence: IN)
  Receive Date: 20210316
  Receipt Date: 20210316
  Transmission Date: 20210420
  Serious: Yes (Other)
  Sender: FDA-Public Use
  Company Number: IN-ASTRAZENECA-2021A131564

PATIENT
  Age: 60 Year
  Sex: Female

DRUGS (5)
  1. EZYGLIP [Concomitant]
  2. VILDAGLIPTIN [Concomitant]
     Active Substance: VILDAGLIPTIN
  3. APZ?5 [Concomitant]
  4. SYMBICORT [Suspect]
     Active Substance: BUDESONIDE\FORMOTEROL FUMARATE DIHYDRATE
     Indication: CHRONIC OBSTRUCTIVE PULMONARY DISEASE
     Dosage: TWO UNITS THREE TIMES A DAY
     Route: 055
     Dates: start: 20210306
  5. GIMMY M?1 [Concomitant]

REACTIONS (2)
  - Hypoaesthesia [Recovering/Resolving]
  - Asthenia [Recovering/Resolving]

NARRATIVE: CASE EVENT DATE: 20210306
